FAERS Safety Report 12584021 (Version 3)
Quarter: 2020Q4

REPORT INFORMATION
  Report Type: Spontaneous
  Country: PT (occurrence: PT)
  Receive Date: 20160722
  Receipt Date: 20201201
  Transmission Date: 20210113
  Serious: Yes (Hospitalization, Other)
  Sender: FDA-Public Use
  Company Number: PT-MYLANLABS-2016M1029522

PATIENT
  Age: 87 Year
  Sex: Male

DRUGS (5)
  1. FUROSEMIDE. [Suspect]
     Active Substance: FUROSEMIDE
     Indication: PRODUCT USED FOR UNKNOWN INDICATION
     Dosage: UNK
     Route: 065
  2. AMIODARONE [Suspect]
     Active Substance: AMIODARONE
     Indication: PRODUCT USED FOR UNKNOWN INDICATION
     Dosage: UNK
     Route: 065
  3. ENALAPRIL [Suspect]
     Active Substance: ENALAPRIL
     Indication: PRODUCT USED FOR UNKNOWN INDICATION
     Dosage: UNK
     Route: 065
  4. SPIRONOLACTONE. [Suspect]
     Active Substance: SPIRONOLACTONE
     Indication: PRODUCT USED FOR UNKNOWN INDICATION
     Dosage: UNK
     Route: 065
  5. TAMSULOSIN [Suspect]
     Active Substance: TAMSULOSIN
     Indication: PRODUCT USED FOR UNKNOWN INDICATION
     Dosage: UNK
     Route: 065

REACTIONS (17)
  - Resting tremor [Recovering/Resolving]
  - Condition aggravated [Recovering/Resolving]
  - Renal injury [Unknown]
  - Hypoaesthesia [Recovering/Resolving]
  - Demyelinating polyneuropathy [Recovering/Resolving]
  - Acute kidney injury [Unknown]
  - Fall [Recovering/Resolving]
  - Gait disturbance [Recovering/Resolving]
  - Toxicity to various agents [Unknown]
  - Peripheral sensorimotor neuropathy [Unknown]
  - Motor dysfunction [Recovering/Resolving]
  - Muscular weakness [Recovering/Resolving]
  - Arrhythmia [Unknown]
  - Mediastinal disorder [Recovering/Resolving]
  - Hyperthyroidism [Unknown]
  - Asthenia [Unknown]
  - Goitre [Unknown]
